FAERS Safety Report 4958823-6 (Version None)
Quarter: 2006Q1

REPORT INFORMATION
  Report Type: 
  Country: None (occurrence: None)
  Receive Date: 20060324
  Receipt Date: 20060316
  Transmission Date: 20060701
  Serious: Yes (Other)
  Sender: FDA-Public Use
  Company Number: 219985

PATIENT
  Age: 71 Year
  Sex: Male
  Weight: 53 kg

DRUGS (7)
  1. RITUXAN [Suspect]
     Indication: NON-HODGKIN'S LYMPHOMA
     Dosage: 375 MG/M2, INTRAVENOUS
     Route: 042
     Dates: start: 20040601, end: 20041115
  2. NOVANTRONE [Suspect]
     Indication: NON-HODGKIN'S LYMPHOMA
     Dosage: 15 MG, INTRAVENOUS
     Route: 042
     Dates: start: 20041116, end: 20041116
  3. FLUDARABINE [Suspect]
     Indication: NON-HODGKIN'S LYMPHOMA
     Dosage: 37.5 MG, INTRAVENOUS
     Route: 042
     Dates: start: 20041116, end: 20041118
  4. DECADRON [Suspect]
     Indication: NON-HODGKIN'S LYMPHOMA
     Dosage: 20 MG/M2, INTRAVENOUS
     Route: 042
     Dates: start: 20041115, end: 20041119
  5. BLOOD TRANSFUSION (BLOOD, WHOLE) [Concomitant]
  6. PLATELETS [Concomitant]
  7. NEUTROGEN (LENOGRASTIM) [Concomitant]

REACTIONS (15)
  - ABDOMINAL PAIN LOWER [None]
  - CYTOMEGALOVIRUS GASTROENTERITIS [None]
  - CYTOMEGALOVIRUS INFECTION [None]
  - DIVERTICULAR HERNIA [None]
  - GENERAL PHYSICAL CONDITION ABNORMAL [None]
  - HAEMATOCHEZIA [None]
  - HAEMOGLOBIN DECREASED [None]
  - INFLAMMATION [None]
  - MELAENA [None]
  - MUCOSAL ULCERATION [None]
  - PLATELET COUNT DECREASED [None]
  - SMALL INTESTINAL HAEMORRHAGE [None]
  - THROMBOSIS [None]
  - ULCER HAEMORRHAGE [None]
  - VOMITING [None]
